FAERS Safety Report 7040246-X (Version None)
Quarter: 2010Q4

REPORT INFORMATION
  Report Type: 
  Country: None (occurrence: None)
  Receive Date: 20101012
  Receipt Date: 20101006
  Transmission Date: 20110411
  Serious: Yes (Hospitalization)
  Sender: FDA-Public Use
  Company Number: US-WYE-H17265510

PATIENT
  Sex: Female

DRUGS (14)
  1. PRISTIQ [Suspect]
     Indication: DEPRESSION
     Dates: start: 20090901
  2. TYLENOL [Concomitant]
     Dosage: UNKNOWN
  3. LUBIPROSTONE [Concomitant]
     Dosage: UNKNOWN
  4. ERGOCALCIFEROL [Concomitant]
     Dosage: UNKNOWN
  5. ACETYLSALICYLIC ACID SRT [Concomitant]
     Dosage: UNKNOWN
  6. ZITHROMAX [Suspect]
     Dosage: UNKNOWN
  7. DIGOXIN [Concomitant]
     Dosage: UNKNOWN
  8. SIMVASTATIN [Concomitant]
     Dosage: UNKNOWN
  9. METHIMAZOLE [Concomitant]
     Dosage: UNKNOWN
  10. POTASSIUM [Concomitant]
     Dosage: UNKNOWN
  11. SALBUTAMOL [Concomitant]
     Dosage: UNKNOWN
  12. BUDESONIDE [Concomitant]
     Dosage: UNKNOWN
  13. CALCIUM [Concomitant]
     Dosage: UNKNOWN
  14. FUROSEMIDE [Concomitant]
     Dosage: UNKNOWN

REACTIONS (3)
  - MEDICATION RESIDUE [None]
  - TORSADE DE POINTES [None]
  - VENTRICULAR TACHYCARDIA [None]
